FAERS Safety Report 13982817 (Version 1)
Quarter: 2017Q3

REPORT INFORMATION
  Report Type: Spontaneous
  Country: US (occurrence: US)
  Receive Date: 20170918
  Receipt Date: 20170918
  Transmission Date: 20171128
  Serious: Yes (Hospitalization)
  Sender: FDA-Public Use
  Company Number: US-LEXICON PHARMACEUTICALS, INC-17-1606-00845

PATIENT
  Age: 65 Year
  Sex: Male

DRUGS (3)
  1. XIFAXAN [Concomitant]
     Active Substance: RIFAXIMIN
  2. LACTULOSE. [Concomitant]
     Active Substance: LACTULOSE
  3. TELOTRISTAT ETHYL [Suspect]
     Active Substance: TELOTRISTAT ETHYL
     Indication: CARCINOID SYNDROME
     Route: 048
     Dates: start: 20170322

REACTIONS (1)
  - Hernia repair [Not Recovered/Not Resolved]

NARRATIVE: CASE EVENT DATE: 20170718
